FAERS Safety Report 8041247-5 (Version None)
Quarter: 2012Q1

REPORT INFORMATION
  Report Type: 
  Country: None (occurrence: None)
  Receive Date: 20120112
  Receipt Date: 20120110
  Transmission Date: 20120608
  Serious: No
  Sender: FDA-Public Use
  Company Number: US-PFIZER INC-2012008592

PATIENT
  Sex: Female

DRUGS (2)
  1. NAPROXEN SODIUM [Suspect]
     Dosage: UNK
  2. CELEBREX [Suspect]
     Dosage: UNK
     Route: 048

REACTIONS (2)
  - DRUG INEFFECTIVE [None]
  - PAIN [None]
